FAERS Safety Report 9519574 (Version 1)
Quarter: 2013Q3

REPORT INFORMATION
  Report Type: Spontaneous
  Country: IT (occurrence: IT)
  Receive Date: 20130912
  Receipt Date: 20130912
  Transmission Date: 20140515
  Serious: Yes (Hospitalization, Other)
  Sender: FDA-Public Use
  Company Number: PHHY2013IT097288

PATIENT
  Sex: 0

DRUGS (2)
  1. AMOXICILLIN [Suspect]
     Dosage: 1 G, THREE TIMES DAILY
     Route: 048
  2. WARFARIN [Concomitant]
     Indication: ATRIAL FIBRILLATION

REACTIONS (7)
  - Renal failure acute [Unknown]
  - Tubulointerstitial nephritis [Unknown]
  - Haematuria [Recovering/Resolving]
  - Proteinuria [Recovering/Resolving]
  - Urinary casts [Recovering/Resolving]
  - Cylindruria [Unknown]
  - Renal tubular disorder [Unknown]
